FAERS Safety Report 14439428 (Version 1)
Quarter: 2018Q1

REPORT INFORMATION
  Report Type: Spontaneous
  Country: GB (occurrence: GB)
  Receive Date: 20180125
  Receipt Date: 20180125
  Transmission Date: 20180509
  Serious: Yes (Other)
  Sender: FDA-Public Use
  Company Number: GB-PFIZER INC-2018027884

PATIENT
  Sex: Male

DRUGS (1)
  1. ATORVASTATIN [Suspect]
     Active Substance: ATORVASTATIN
     Indication: LIPIDS INCREASED
     Dosage: UNK

REACTIONS (3)
  - Arrhythmia [Unknown]
  - Muscle contractions involuntary [Unknown]
  - Bulbar palsy [Unknown]
